FAERS Safety Report 8242782-7 (Version None)
Quarter: 2012Q1

REPORT INFORMATION
  Report Type: 
  Country: None (occurrence: None)
  Receive Date: 20120329
  Receipt Date: 20120321
  Transmission Date: 20120608
  Serious: Yes (Death)
  Sender: FDA-Public Use
  Company Number: SE-JNJFOC-20120313856

PATIENT

DRUGS (21)
  1. CYCLOPHOSPHAMIDE [Suspect]
     Route: 065
  2. RITUXIMAB [Suspect]
     Route: 065
  3. VINCRISTINE [Suspect]
     Route: 065
  4. PREDNISONE TAB [Suspect]
     Route: 065
  5. RITUXIMAB [Suspect]
     Indication: DIFFUSE LARGE B-CELL LYMPHOMA
     Route: 065
  6. DOXORUBICIN HCL [Suspect]
     Dosage: CYCLE 2
     Route: 042
  7. VINCRISTINE [Suspect]
     Route: 065
  8. PREDNISONE TAB [Suspect]
     Route: 065
  9. NEUPOGEN [Concomitant]
     Route: 065
  10. DOXORUBICIN HCL [Suspect]
     Indication: DIFFUSE LARGE B-CELL LYMPHOMA
     Dosage: CYCLE 4
     Route: 042
  11. PREDNISONE TAB [Suspect]
     Indication: DIFFUSE LARGE B-CELL LYMPHOMA
     Route: 065
  12. RITUXIMAB [Suspect]
     Route: 065
  13. CYCLOPHOSPHAMIDE [Suspect]
     Indication: DIFFUSE LARGE B-CELL LYMPHOMA
     Route: 065
  14. CYCLOPHOSPHAMIDE [Suspect]
     Route: 065
  15. CYCLOPHOSPHAMIDE [Suspect]
     Route: 065
  16. VINCRISTINE [Suspect]
     Indication: DIFFUSE LARGE B-CELL LYMPHOMA
     Route: 065
  17. DOXORUBICIN HCL [Suspect]
     Dosage: CYCLE 3
     Route: 042
  18. DOXORUBICIN HCL [Suspect]
     Dosage: CYCLE 1
     Route: 042
  19. RITUXIMAB [Suspect]
     Route: 065
  20. VINCRISTINE [Suspect]
     Route: 065
  21. PREDNISONE TAB [Suspect]
     Route: 065

REACTIONS (1)
  - SEPSIS [None]
